FAERS Safety Report 5866982-6 (Version None)
Quarter: 2008Q3

REPORT INFORMATION
  Report Type: 
  Country: None (occurrence: None)
  Receive Date: 20080828
  Receipt Date: 20080828
  Transmission Date: 20090109
  Serious: Yes (Hospitalization)
  Sender: FDA-Public Use
  Company Number: None

PATIENT
  Age: 67 Year
  Sex: Male

DRUGS (1)
  1. IODIXANOL [Suspect]
     Dates: start: 20080702, end: 20080702

REACTIONS (5)
  - CONDITION AGGRAVATED [None]
  - DYSPNOEA [None]
  - HAEMOPTYSIS [None]
  - PETECHIAE [None]
  - THROMBOCYTOPENIA [None]
